FAERS Safety Report 14878210 (Version 1)
Quarter: 2018Q2

REPORT INFORMATION
  Report Type: Spontaneous
  Country: US (occurrence: US)
  Receive Date: 20180510
  Receipt Date: 20180510
  Transmission Date: 20180711
  Serious: No
  Sender: FDA-Public Use
  Company Number: US-ASTRAZENECA-2018SE49337

PATIENT
  Age: 49 Year
  Sex: Female

DRUGS (5)
  1. AMLODIPINE [Concomitant]
     Active Substance: AMLODIPINE BESYLATE
  2. VALIUM [Concomitant]
     Active Substance: DIAZEPAM
  3. XANAX [Concomitant]
     Active Substance: ALPRAZOLAM
  4. GLIPIZIDE. [Concomitant]
     Active Substance: GLIPIZIDE
  5. FARXIGA [Suspect]
     Active Substance: DAPAGLIFLOZIN PROPANEDIOL
     Indication: TYPE 2 DIABETES MELLITUS
     Dosage: 5 MG, UNKNOWN
     Route: 048
     Dates: start: 20180402

REACTIONS (2)
  - Visual impairment [Unknown]
  - Dysgeusia [Unknown]
